FAERS Safety Report 5006072-8 (Version None)
Quarter: 2006Q1

REPORT INFORMATION
  Report Type: 
  Country: None (occurrence: None)
  Receive Date: 20060328
  Receipt Date: 20060210
  Transmission Date: 20060701
  Serious: No
  Sender: FDA-Public Use
  Company Number: 06P-163-0321631-00

PATIENT
  Age: 36 Year
  Sex: Female
  Weight: 54.4316 kg

DRUGS (3)
  1. HUMIRA [Suspect]
     Indication: PSORIATIC ARTHROPATHY
     Dosage: 40 MG, 1 IN 2 WKM SUBCUTANEOUS
     Route: 058
     Dates: start: 20051201, end: 20060208
  2. LORATADINE [Concomitant]
  3. CALCIPOTRIENE [Concomitant]

REACTIONS (1)
  - MULTIPLE SCLEROSIS [None]
